FAERS Safety Report 24264888 (Version 2)
Quarter: 2024Q4

REPORT INFORMATION
  Report Type: Spontaneous
  Country: GB (occurrence: GB)
  Receive Date: 20240829
  Receipt Date: 20241009
  Transmission Date: 20250114
  Serious: Yes (Death, Other)
  Sender: ELI LILLY AND CO
  Company Number: None

PATIENT
  Age: 67 Year
  Sex: Female
  Weight: 85 kg

DRUGS (17)
  1. TRULICITY [Suspect]
     Active Substance: DULAGLUTIDE
     Indication: Type 2 diabetes mellitus
     Dosage: 3 MG, UNKNOWN
     Route: 065
     Dates: start: 20230725
  2. FERROUS FUMARATE [Concomitant]
     Active Substance: FERROUS FUMARATE
     Indication: Iron deficiency
     Dosage: 210 MG
     Dates: start: 202309
  3. CHOLECALCIFEROL [Concomitant]
     Active Substance: CHOLECALCIFEROL
     Indication: Product used for unknown indication
     Dosage: 3200 INTERNATIONAL UNIT
  4. IVABRADINE [Concomitant]
     Active Substance: IVABRADINE
     Indication: Cardiac disorder
     Dosage: 5 MG
     Dates: start: 202311
  5. ALENDRONIC ACID [Concomitant]
     Active Substance: ALENDRONIC ACID
     Indication: Osteoporosis
     Dosage: UNK
     Dates: start: 202304
  6. APIXABAN [Concomitant]
     Active Substance: APIXABAN
     Indication: Coagulopathy
     Dosage: 2.5 MG
     Dates: start: 202102
  7. ATORVASTATIN [Concomitant]
     Active Substance: ATORVASTATIN
     Indication: Type 2 diabetes mellitus
     Dosage: UNK
     Dates: start: 200501
  8. BISOPROLOL [Concomitant]
     Active Substance: BISOPROLOL\BISOPROLOL FUMARATE
     Indication: Cardiac disorder
     Dosage: 3.75 MG
     Dates: start: 202207
  9. DAPAGLIFLOZIN [Concomitant]
     Active Substance: DAPAGLIFLOZIN
     Indication: Type 2 diabetes mellitus
     Dosage: 10 MG
     Dates: start: 202205
  10. LANSOPRAZOLE [Concomitant]
     Active Substance: LANSOPRAZOLE
     Indication: Gastrointestinal disorder
     Dosage: 15 MG
     Dates: start: 202311
  11. METFORMIN [Concomitant]
     Active Substance: METFORMIN HYDROCHLORIDE
     Indication: Type 2 diabetes mellitus
     Dosage: 500 MG
     Dates: start: 200412
  12. TOUJEO [Concomitant]
     Active Substance: INSULIN GLARGINE
     Indication: Type 2 diabetes mellitus
     Dosage: UNK
     Dates: start: 202404
  13. INSULIN ASPART [Concomitant]
     Active Substance: INSULIN ASPART
     Indication: Type 2 diabetes mellitus
     Dosage: 100 U
     Dates: start: 202404
  14. PREGABALIN [Concomitant]
     Active Substance: PREGABALIN
     Indication: Pain
     Dosage: 50 MG
     Dates: start: 202401
  15. SERTRALINE [Concomitant]
     Active Substance: SERTRALINE HYDROCHLORIDE
     Indication: Depression
     Dosage: 100 MG
     Dates: start: 201406
  16. RANOLAZINE [Concomitant]
     Active Substance: RANOLAZINE
     Indication: Cardiac disorder
     Dosage: 375 MG
     Dates: start: 202311
  17. SACUBITRIL\VALSARTAN [Concomitant]
     Active Substance: SACUBITRIL\VALSARTAN
     Indication: Cardiac disorder
     Dosage: UNK
     Dates: start: 202111

REACTIONS (4)
  - Pancreatic carcinoma metastatic [Fatal]
  - Back pain [Unknown]
  - Asthenia [Unknown]
  - Decreased appetite [Unknown]

NARRATIVE: CASE EVENT DATE: 20240715
